FAERS Safety Report 9376870 (Version 2)
Quarter: 2013Q3

REPORT INFORMATION
  Report Type: Spontaneous
  Country: VE (occurrence: VE)
  Receive Date: 20130701
  Receipt Date: 20130827
  Transmission Date: 20140515
  Serious: Yes (Other)
  Sender: FDA-Public Use
  Company Number: VE-AMGEN-VENSP2013045660

PATIENT
  Age: 64 Year
  Sex: Female

DRUGS (5)
  1. ENBREL [Suspect]
     Indication: RHEUMATOID ARTHRITIS
     Dosage: 50 MG, WEEKLY
     Route: 058
     Dates: start: 2010, end: 20130504
  2. ENBREL [Suspect]
     Dosage: 50 MG, WEEKLY
     Route: 058
     Dates: start: 20130512
  3. BENICAR HCT [Concomitant]
     Indication: HYPERTENSION
     Dosage: 1 DF, 1X/DAY
     Route: 048
     Dates: start: 2008
  4. CARVEDILOL [Concomitant]
     Indication: HYPERTENSION
     Dosage: 12.5 MG, 1X/DAY
     Route: 048
     Dates: start: 2011
  5. ALDACTONE                          /00006201/ [Concomitant]
     Indication: PROPHYLAXIS
     Dosage: 100 MG, 1X/DAY
     Route: 048
     Dates: start: 2011

REACTIONS (1)
  - Tendon rupture [Recovered/Resolved]
